FAERS Safety Report 5563220-9 (Version None)
Quarter: 2007Q4

REPORT INFORMATION
  Report Type: 
  Country: None (occurrence: None)
  Receive Date: 20071213
  Receipt Date: 20071213
  Transmission Date: 20080405
  Serious: No
  Sender: FDA-Public Use
  Company Number: None

PATIENT
  Age: 16 Year
  Sex: Female

DRUGS (1)
  1. DEXMETHYLPHENIDATE HCL [Suspect]
     Indication: ATTENTION DEFICIT/HYPERACTIVITY DISORDER
     Dosage: ONE PO Q AFTERNOON
     Route: 048

REACTIONS (3)
  - CHEST DISCOMFORT [None]
  - GENERALISED ANXIETY DISORDER [None]
  - PHARMACEUTICAL PRODUCT COMPLAINT [None]
